FAERS Safety Report 15208344 (Version 1)
Quarter: 2018Q3

REPORT INFORMATION
  Report Type: Spontaneous
  Country: US (occurrence: US)
  Receive Date: 20180727
  Receipt Date: 20180727
  Transmission Date: 20181010
  Serious: No
  Sender: FDA-Public Use
  Company Number: US-JNJFOC-20180705122

PATIENT
  Age: 80 Year
  Sex: Female

DRUGS (2)
  1. CODEINE [Concomitant]
     Active Substance: CODEINE
     Indication: FRACTURE PAIN
     Route: 065
  2. TYLENOL REGULAR STRENGTH [Suspect]
     Active Substance: ACETAMINOPHEN
     Indication: FRACTURE PAIN
     Dosage: EVERY FOUR TO SIX HOURS
     Route: 065

REACTIONS (2)
  - Product use in unapproved indication [Unknown]
  - Off label use [Unknown]
